FAERS Safety Report 7015724-X (Version None)
Quarter: 2010Q3

REPORT INFORMATION
  Report Type: 
  Country: None (occurrence: None)
  Receive Date: 20100927
  Receipt Date: 20100521
  Transmission Date: 20110219
  Serious: No
  Sender: FDA-Public Use
  Company Number: US-ASTRAZENECA-2010SE23484

PATIENT
  Age: 82 Year
  Sex: Female

DRUGS (6)
  1. ARIMIDEX [Suspect]
     Route: 048
  2. ATENOLOL [Concomitant]
  3. POTASSIUM [Concomitant]
  4. IMDUR [Concomitant]
  5. GLIPIZIDE [Concomitant]
  6. DETROL [Concomitant]

REACTIONS (3)
  - ABDOMINAL PAIN UPPER [None]
  - DIARRHOEA [None]
  - INCORRECT DOSE ADMINISTERED [None]
